FAERS Safety Report 9639453 (Version 6)
Quarter: 2014Q1

REPORT INFORMATION
  Report Type: Report from Study
  Country: GB (occurrence: GB)
  Receive Date: 20131022
  Receipt Date: 20140121
  Transmission Date: 20141002
  Serious: Yes (Hospitalization)
  Sender: FDA-Public Use
  Company Number: GB-ROCHE-1275729

PATIENT
  Age: 46 Year
  Sex: Female
  Weight: 75 kg

DRUGS (1)
  1. TRASTUZUMAB EMTANSINE [Suspect]
     Indication: BREAST CANCER METASTATIC
     Dosage: LAST DOSE PRIOR TO ADVERSE EVENTS: 256.68MG ON 30/AUG/2013.
     Route: 042
     Dates: start: 20130809

REACTIONS (2)
  - Alanine aminotransferase increased [Recovered/Resolved]
  - Sepsis [Recovered/Resolved]
